FAERS Safety Report 22298817 (Version 1)
Quarter: 2023Q2

REPORT INFORMATION
  Report Type: Spontaneous
  Country: US (occurrence: None)
  Receive Date: 20230508
  Receipt Date: 20230508
  Transmission Date: 20230721
  Serious: Yes (Death)
  Sender: FDA-Public Use
  Company Number: None

PATIENT
  Age: 70 Year
  Sex: Male

DRUGS (2)
  1. AMBRISENTAN [Suspect]
     Active Substance: AMBRISENTAN
     Indication: Pulmonary hypertension
     Dosage: FREQUENCY : DAILY;?
     Route: 048
     Dates: start: 20140228, end: 20230209
  2. TRIAMCINOLONE TOP CREAM [Concomitant]
     Route: 061

REACTIONS (6)
  - Diarrhoea [None]
  - Acute respiratory failure [None]
  - Hepatic failure [None]
  - Right ventricular failure [None]
  - Therapy interrupted [None]
  - Liver function test abnormal [None]

NARRATIVE: CASE EVENT DATE: 20230124
